FAERS Safety Report 5645306-3 (Version None)
Quarter: 2008Q1

REPORT INFORMATION
  Report Type: 
  Country: None (occurrence: None)
  Receive Date: 20080229
  Receipt Date: 20080227
  Transmission Date: 20080703
  Serious: Yes (Other)
  Sender: FDA-Public Use
  Company Number: A0712044A

PATIENT
  Sex: Male

DRUGS (1)
  1. SOMINEX [Suspect]
     Indication: INTENTIONAL OVERDOSE
     Dosage: 16CAPL SINGLE DOSE
     Route: 048
     Dates: start: 20080224, end: 20080224

REACTIONS (3)
  - DRUG INEFFECTIVE [None]
  - INTENTIONAL OVERDOSE [None]
  - MALAISE [None]
